FAERS Safety Report 6909165-0 (Version None)
Quarter: 2010Q3

REPORT INFORMATION
  Report Type: 
  Country: None (occurrence: None)
  Receive Date: 20100805
  Receipt Date: 20100730
  Transmission Date: 20110219
  Serious: Yes (Death)
  Sender: FDA-Public Use
  Company Number: US-CEPHALON-2010004079

PATIENT
  Age: 31 Year

DRUGS (7)
  1. AMRIX [Suspect]
     Route: 048
  2. METHADONE HCL [Suspect]
  3. ACETAMINOPHEN AND OXYCODONE HCL [Suspect]
  4. HYDROCODONE BITARTRATE [Suspect]
  5. ESZOPICLONE [Suspect]
  6. DULOXETINE HYDROCHLORIDE [Suspect]
  7. RISPERIDONE [Suspect]

REACTIONS (1)
  - COMPLETED SUICIDE [None]
